FAERS Safety Report 6292002-8 (Version None)
Quarter: 2009Q3

REPORT INFORMATION
  Report Type: 
  Country: None (occurrence: None)
  Receive Date: 20090729
  Receipt Date: 20090720
  Transmission Date: 20100115
  Serious: Yes (Hospitalization)
  Sender: FDA-Public Use
  Company Number: 8020236

PATIENT
  Age: 44 Year
  Sex: Female
  Weight: 71.82 kg

DRUGS (10)
  1. KEPPRA [Suspect]
     Indication: EPILEPSY
     Dosage: 500 MG 2/D IV
     Route: 042
     Dates: start: 20060901, end: 20060903
  2. KEPPRA [Suspect]
     Indication: EPILEPSY
     Dosage: 500 MG 2/D  PO
     Route: 048
     Dates: start: 20060903, end: 20061009
  3. KEPPRA [Suspect]
     Indication: EPILEPSY
     Dosage: 750 MG 2/D PO
     Route: 048
     Dates: start: 20061009
  4. KEPPRA [Suspect]
     Indication: EPILEPSY
     Dosage: 200 MG 2/D
  5. KEPPRA [Suspect]
     Indication: EPILEPSY
     Dosage: 300 MG 2/D
  6. MS CONTIN [Concomitant]
  7. OXYCODONE [Concomitant]
  8. OPPANLE [Concomitant]
  9. FENTORA [Concomitant]
  10. PREMARIN [Concomitant]

REACTIONS (6)
  - CONVULSION [None]
  - DECREASED APPETITE [None]
  - PAROSMIA [None]
  - SINUSITIS [None]
  - SOMNOLENCE [None]
  - WEIGHT DECREASED [None]
